FAERS Safety Report 16166280 (Version 4)
Quarter: 2020Q2

REPORT INFORMATION
  Report Type: Report from Study
  Country: US (occurrence: US)
  Receive Date: 20190406
  Receipt Date: 20200515
  Transmission Date: 20200713
  Serious: No
  Sender: FDA-Public Use
  Company Number: PHEH2019US014648

PATIENT
  Sex: Male

DRUGS (2)
  1. ENTRESTO [Suspect]
     Active Substance: SACUBITRIL\VALSARTAN
     Dosage: UNK UNK, BID
     Route: 048
     Dates: start: 20200513
  2. ENTRESTO [Suspect]
     Active Substance: SACUBITRIL\VALSARTAN
     Indication: CARDIAC FAILURE
     Dosage: UNK UNK, BID
     Route: 048
     Dates: start: 201703, end: 20200513

REACTIONS (4)
  - Arthritis [Recovering/Resolving]
  - Hypotension [Unknown]
  - Malaise [Not Recovered/Not Resolved]
  - Gout [Recovering/Resolving]
